FAERS Safety Report 15673180 (Version 1)
Quarter: 2018Q4

REPORT INFORMATION
  Report Type: Spontaneous
  Country: US (occurrence: US)
  Receive Date: 20181129
  Receipt Date: 20181129
  Transmission Date: 20190205
  Serious: No
  Sender: FDA-Public Use
  Company Number: US-PFIZER INC-2018301351

PATIENT
  Age: 63 Year
  Sex: Female

DRUGS (9)
  1. DOCETAXEL ACCORD [Suspect]
     Active Substance: DOCETAXEL
     Indication: BREAST CANCER FEMALE
     Dosage: 135 MG, CYCLIC (06 CYCLES, EVERY THREE WEEKS)
     Dates: start: 20121018, end: 20130326
  2. NEXIUM [Concomitant]
     Active Substance: ESOMEPRAZOLE MAGNESIUM
     Dosage: UNK
     Dates: start: 2000
  3. TAXOTERE [Suspect]
     Active Substance: DOCETAXEL
     Indication: BREAST CANCER FEMALE
     Dosage: 135 MG, CYCLIC (06 CYCLES, EVERY THREE WEEKS)
     Dates: start: 20121018, end: 20130326
  4. ESTROGEN [Concomitant]
     Active Substance: ESTROGENS
     Dosage: UNK
     Dates: start: 1980, end: 2012
  5. DOCETAXEL SANDOZ [Suspect]
     Active Substance: DOCETAXEL
     Indication: BREAST CANCER FEMALE
     Dosage: 135 MG, CYCLIC (06 CYCLES, EVERY THREE WEEKS)
     Dates: start: 20121018, end: 20130326
  6. DOCETAXEL. [Suspect]
     Active Substance: DOCETAXEL
     Indication: BREAST CANCER FEMALE
     Dosage: 135 MG, CYCLIC (06 CYCLES, EVERY THREE WEEKS)
     Dates: start: 20121018, end: 20130326
  7. CRESTOR [Concomitant]
     Active Substance: ROSUVASTATIN CALCIUM
     Dosage: UNK
     Dates: start: 2000
  8. DOCETAXEL SUN [Suspect]
     Active Substance: DOCETAXEL
     Indication: BREAST CANCER FEMALE
     Dosage: 135 MG, CYCLIC (06 CYCLES, EVERY THREE WEEKS)
     Dates: start: 20121018, end: 20130326
  9. NEOSAR [Concomitant]
     Active Substance: CYCLOPHOSPHAMIDE
     Indication: CHEMOTHERAPY
     Dosage: UNK

REACTIONS (2)
  - Alopecia [Not Recovered/Not Resolved]
  - Madarosis [Not Recovered/Not Resolved]

NARRATIVE: CASE EVENT DATE: 201307
